FAERS Safety Report 25622202 (Version 1)
Quarter: 2025Q3

REPORT INFORMATION
  Report Type: Spontaneous
  Country: US (occurrence: None)
  Receive Date: 20250729
  Receipt Date: 20250729
  Transmission Date: 20251020
  Serious: Yes (unspecified)
  Sender: FDA-CTU
  Company Number: None

PATIENT
  Age: 38 Year
  Sex: Male
  Weight: 102.96 kg

DRUGS (2)
  1. DIVALPROEX SODIUM DR [Suspect]
     Active Substance: DIVALPROEX SODIUM
     Indication: Bipolar disorder
     Dosage: 1500 MG TWICE A DAY ORAL
     Route: 048
     Dates: start: 20240610
  2. DIVALPROEX SODIUM DR [Suspect]
     Active Substance: DIVALPROEX SODIUM
     Indication: Bipolar disorder
     Dosage: 750 MG TWICE A DAY ORAL ?
     Route: 048
     Dates: start: 20240613, end: 20240619

REACTIONS (2)
  - Drug level increased [None]
  - Liver function test increased [None]

NARRATIVE: CASE EVENT DATE: 20240617
